FAERS Safety Report 13341331 (Version 2)
Quarter: 2017Q2

REPORT INFORMATION
  Report Type: Spontaneous
  Country: US (occurrence: US)
  Receive Date: 20170316
  Receipt Date: 20170406
  Transmission Date: 20170830
  Serious: No
  Sender: FDA-Public Use
  Company Number: US-GLAXOSMITHKLINE-US2017036519

PATIENT
  Age: 87 Year
  Sex: Female
  Weight: 61.22 kg

DRUGS (1)
  1. ADVAIR DISKUS [Suspect]
     Active Substance: FLUTICASONE PROPIONATE\SALMETEROL XINAFOATE
     Indication: LUNG NEOPLASM MALIGNANT
     Dosage: 1 PUFF(S), 1D
     Route: 055
     Dates: start: 201203

REACTIONS (4)
  - Underdose [Not Recovered/Not Resolved]
  - Product use in unapproved indication [Unknown]
  - Dyspnoea [Recovering/Resolving]
  - Overdose [Recovered/Resolved]

NARRATIVE: CASE EVENT DATE: 201703
